FAERS Safety Report 11107406 (Version 1)
Quarter: 2015Q2

REPORT INFORMATION
  Report Type: Spontaneous
  Country: FR (occurrence: FR)
  Receive Date: 20150512
  Receipt Date: 20150512
  Transmission Date: 20150821
  Serious: Yes (Hospitalization, Other)
  Sender: FDA-Public Use
  Company Number: FR-GLAXOSMITHKLINE-FR2015GSK063273

PATIENT
  Age: 57 Year
  Sex: Male

DRUGS (6)
  1. TAHOR [Concomitant]
     Active Substance: ATORVASTATIN CALCIUM
  2. PLAVIX [Concomitant]
     Active Substance: CLOPIDOGREL BISULFATE
  3. OMEGA-3-ACID ETHYL ESTERS. [Suspect]
     Active Substance: OMEGA-3-ACID ETHYL ESTERS
     Indication: ISCHAEMIC HEART DISEASE PROPHYLAXIS
     Dosage: UNK
  4. CARDENSIEL [Concomitant]
     Active Substance: BISOPROLOL FUMARATE
  5. KARDEGIC [Concomitant]
     Active Substance: ASPIRIN LYSINE
  6. COVERSYL [Concomitant]
     Active Substance: PERINDOPRIL

REACTIONS (1)
  - Angina pectoris [Recovered/Resolved]

NARRATIVE: CASE EVENT DATE: 20090727
